FAERS Safety Report 16460380 (Version 1)
Quarter: 2019Q2

REPORT INFORMATION
  Report Type: Spontaneous
  Country: IT (occurrence: IT)
  Receive Date: 20190620
  Receipt Date: 20190620
  Transmission Date: 20190711
  Serious: Yes (Hospitalization)
  Sender: FDA-Public Use
  Company Number: IT-TEVA-2019-IT-1066580

PATIENT
  Age: 92 Year
  Sex: Female
  Weight: 51 kg

DRUGS (2)
  1. ALLOPURINOLO [Suspect]
     Active Substance: ALLOPURINOL
     Indication: HYPERURICAEMIA
     Dosage: 150MG PER DAY
     Route: 048
     Dates: start: 20180328, end: 20180410
  2. COUMADIN [Concomitant]
     Active Substance: WARFARIN SODIUM
     Indication: ATRIAL FIBRILLATION
     Dosage: 5 MG PER AS REQUIRED
     Route: 048

REACTIONS (1)
  - Melaena [Recovered/Resolved with Sequelae]

NARRATIVE: CASE EVENT DATE: 20180409
